FAERS Safety Report 13042639 (Version 1)
Quarter: 2016Q4

REPORT INFORMATION
  Report Type: Spontaneous
  Country: FR (occurrence: FR)
  Receive Date: 20161219
  Receipt Date: 20161219
  Transmission Date: 20170207
  Serious: Yes (Other)
  Sender: FDA-Public Use
  Company Number: FR-MYLANLABS-2016M1055795

PATIENT

DRUGS (2)
  1. RISPERIDONE MYLAN 2 MG, COMPRIM? ORODISPERSIBLE [Suspect]
     Active Substance: RISPERIDONE
     Indication: PRODUCT USED FOR UNKNOWN INDICATION
     Dosage: UNK
     Dates: start: 20161130
  2. REPAGLINIDE ARROW [Suspect]
     Active Substance: REPAGLINIDE
     Indication: PRODUCT USED FOR UNKNOWN INDICATION
     Dosage: UNK

REACTIONS (4)
  - Malaise [Unknown]
  - Medication error [Unknown]
  - Inappropriate schedule of drug administration [None]
  - Blood pressure decreased [Unknown]

NARRATIVE: CASE EVENT DATE: 20161130
